FAERS Safety Report 7186471-9 (Version None)
Quarter: 2010Q4

REPORT INFORMATION
  Report Type: 
  Country: None (occurrence: None)
  Receive Date: 20101222
  Receipt Date: 20101217
  Transmission Date: 20110411
  Serious: Yes (Life-Threatening, Hospitalization)
  Sender: FDA-Public Use
  Company Number: FR-PFIZER INC-2010174154

PATIENT
  Age: 85 Year
  Sex: Female

DRUGS (9)
  1. CELEBREX [Suspect]
     Dosage: UNK
     Route: 048
     Dates: start: 20100701, end: 20100802
  2. LANSOPRAZOLE [Concomitant]
     Dosage: 1 DF, 1X/DAY
     Route: 048
     Dates: start: 20100701, end: 20100826
  3. BROMAZEPAM [Concomitant]
     Dosage: 0.5 DF, 1X/DAY
     Dates: start: 20100802, end: 20100826
  4. AMLODIPINE [Concomitant]
     Dosage: UNK
     Route: 048
     Dates: start: 20100802, end: 20100826
  5. SOTALOL HYDROCHLORIDE [Concomitant]
     Dosage: 80 MG, 2X/DAY
     Route: 048
  6. KARDEGIC [Concomitant]
     Dosage: 75 MG, 1X/DAY
     Route: 048
     Dates: start: 20100802, end: 20100826
  7. EZETIMIBE/SIMVASTATIN [Concomitant]
     Dosage: 10 MG/20 MG, 1X/DAY
     Route: 048
     Dates: start: 20100802, end: 20100826
  8. TRAMADOL [Concomitant]
     Dosage: 200 MG, 1X/DAY
     Dates: start: 20100802, end: 20100826
  9. LOVENOX [Concomitant]
     Dosage: 0.2 ML, 1X/DAY
     Route: 058
     Dates: start: 20100802, end: 20100826

REACTIONS (5)
  - DEHYDRATION [None]
  - DIARRHOEA HAEMORRHAGIC [None]
  - HAEMORRHAGIC STROKE [None]
  - HYPERTENSION [None]
  - RENAL FAILURE ACUTE [None]
